FAERS Safety Report 6401824-1 (Version None)
Quarter: 2009Q4

REPORT INFORMATION
  Report Type: 
  Country: None (occurrence: None)
  Receive Date: 20091013
  Receipt Date: 20091013
  Transmission Date: 20100525
  Serious: Yes (Death)
  Sender: FDA-Public Use
  Company Number: None

PATIENT
  Age: 78 Year
  Sex: Male
  Weight: 66.6788 kg

DRUGS (4)
  1. AVASTIN [Suspect]
     Indication: PROSTATE CANCER
     Dosage: 1090MG OVER 30 MINUTES: INTRAVENOUS (NOT OTHERWISE SPECIFIED)
     Route: 042
     Dates: start: 20081208, end: 20090420
  2. AVASTIN [Suspect]
  3. CISPLATIN [Suspect]
     Indication: PROSTATE CANCER
     Dosage: 125MG: INTRAVENOUS (NOT OTHERWISE SPECIFIED)
     Route: 042
     Dates: start: 20081208, end: 20090330
  4. GEMZAR [Suspect]
     Indication: PROSTATE CANCER
     Dosage: 1790MG: INTRAVENOUS (NOT OTHERWISE SPECIFIE
     Route: 042
     Dates: start: 20081208, end: 20090330

REACTIONS (11)
  - AORTIC DISSECTION [None]
  - BLOOD UREA INCREASED [None]
  - CARDIAC TAMPONADE [None]
  - CAROTID ARTERY STENOSIS [None]
  - CEREBELLAR ARTERY OCCLUSION [None]
  - HAEMATOCRIT DECREASED [None]
  - HAEMOGLOBIN DECREASED [None]
  - ISCHAEMIC STROKE [None]
  - PLEURAL EFFUSION [None]
  - RESPIRATORY RATE INCREASED [None]
  - SINUS BRADYCARDIA [None]
